FAERS Safety Report 23820594 (Version 1)
Quarter: 2024Q2

REPORT INFORMATION
  Report Type: Spontaneous
  Country: AU (occurrence: AU)
  Receive Date: 20240506
  Receipt Date: 20240506
  Transmission Date: 20240716
  Serious: Yes (Other)
  Sender: FDA-Public Use
  Company Number: AU-TAKEDA-2024TUS042093

PATIENT
  Age: 18 Year
  Sex: Female

DRUGS (4)
  1. ENTYVIO [Suspect]
     Active Substance: VEDOLIZUMAB
     Indication: Crohn^s disease
     Dosage: 300 MILLIGRAM
     Route: 042
     Dates: start: 202206
  2. PENTASA [Suspect]
     Active Substance: MESALAMINE
     Indication: Product used for unknown indication
     Dosage: 4 GRAM, QD
     Route: 065
  3. PREDNISOLONE [Suspect]
     Active Substance: PREDNISOLONE
     Indication: Product used for unknown indication
     Dosage: UNK
     Route: 065
  4. AZATHIOPRINE [Suspect]
     Active Substance: AZATHIOPRINE
     Indication: Product used for unknown indication
     Dosage: 12.5 MILLIGRAM
     Route: 065
     Dates: start: 201812

REACTIONS (14)
  - Crohn^s disease [Unknown]
  - Abdominal discomfort [Unknown]
  - Asthenia [Unknown]
  - Weight increased [Unknown]
  - Affective disorder [Unknown]
  - Impaired work ability [Unknown]
  - Gastric mucosa erythema [Unknown]
  - Lethargy [Unknown]
  - Product use complaint [Unknown]
  - COVID-19 [Unknown]
  - Drug level fluctuating [Unknown]
  - Iron deficiency [Unknown]
  - Arthralgia [Unknown]
  - Nausea [Unknown]
